FAERS Safety Report 5101519-0 (Version None)
Quarter: 2006Q3

REPORT INFORMATION
  Report Type: 
  Country: None (occurrence: None)
  Receive Date: 20060911
  Receipt Date: 20060828
  Transmission Date: 20061208
  Serious: Yes (Other)
  Sender: FDA-Public Use
  Company Number: US-JNJFOC-20060806531

PATIENT
  Sex: Male
  Weight: 104.33 kg

DRUGS (3)
  1. DURAGESIC-100 [Suspect]
     Indication: BACK PAIN
     Route: 062
  2. ULTRAM [Suspect]
     Indication: PAIN
     Route: 048
  3. BACLOFEN [Concomitant]
     Indication: MUSCLE SPASMS
     Route: 048

REACTIONS (6)
  - BACK DISORDER [None]
  - CONDITION AGGRAVATED [None]
  - CONVULSION [None]
  - DRUG WITHDRAWAL SYNDROME [None]
  - HAEMORRHAGE [None]
  - PHARMACEUTICAL PRODUCT COMPLAINT [None]
